FAERS Safety Report 9105370 (Version 1)
Quarter: 2013Q1

REPORT INFORMATION
  Report Type: Spontaneous
  Country: GB (occurrence: GB)
  Receive Date: 20130220
  Receipt Date: 20130220
  Transmission Date: 20140127
  Serious: Yes (Disabling)
  Sender: FDA-Public Use
  Company Number: GB-UCBSA-078286

PATIENT
  Age: 50 Year
  Sex: Male

DRUGS (10)
  1. VIMPAT [Suspect]
     Indication: EPILEPSY
     Route: 048
     Dates: start: 2011
  2. FOLIC ACID [Concomitant]
  3. TAMSULOSIN [Concomitant]
  4. CLOBAZAM [Concomitant]
  5. FLUOXETINE [Concomitant]
  6. LAMOTRIGINE [Concomitant]
  7. MOVICOL [Concomitant]
  8. MULTIVITAMIN [Concomitant]
  9. VITAMIN B12 [Concomitant]
  10. VITAMIN B12 [Concomitant]

REACTIONS (5)
  - Confusional state [Recovered/Resolved with Sequelae]
  - Disorientation [Recovered/Resolved with Sequelae]
  - Mania [Recovered/Resolved with Sequelae]
  - Pressure of speech [Recovered/Resolved with Sequelae]
  - Hypertonia [Recovered/Resolved with Sequelae]
